FAERS Safety Report 4432888-2 (Version None)
Quarter: 2004Q3

REPORT INFORMATION
  Report Type: 
  Country: None (occurrence: None)
  Receive Date: 20040726
  Receipt Date: 20040506
  Transmission Date: 20050211
  Serious: Yes (Other)
  Sender: FDA-Public Use
  Company Number: USA040362673

PATIENT
  Age: 81 Year
  Sex: Female
  Weight: 61 kg

DRUGS (13)
  1. EVISTA [Suspect]
     Indication: OSTEOPOROSIS
     Dates: end: 20040319
  2. FORTEO [Suspect]
     Indication: OSTEOPOROSIS
     Dosage: 20 UG/ 1 DAY
     Dates: start: 20040319, end: 20040319
  3. FOSAMAX [Concomitant]
  4. ACTONEL [Concomitant]
  5. MIACALCIN [Concomitant]
  6. CITRACAL + D [Concomitant]
  7. PREDNISONE [Concomitant]
  8. PRAVACHOL [Concomitant]
  9. ATACAND [Concomitant]
  10. ASPIRIN [Concomitant]
  11. MULTI-VITAMINS [Concomitant]
  12. CELEBREX [Concomitant]
  13. ATENOLOL [Concomitant]

REACTIONS (4)
  - ASTHENIA [None]
  - FRACTURE [None]
  - NAUSEA [None]
  - THORACIC VERTEBRAL FRACTURE [None]
